FAERS Safety Report 7385674-8 (Version None)
Quarter: 2011Q1

REPORT INFORMATION
  Report Type: 
  Country: None (occurrence: None)
  Receive Date: 20110331
  Receipt Date: 20110323
  Transmission Date: 20110831
  Serious: No
  Sender: FDA-Public Use
  Company Number: US-BIOGENIDEC-2011BI011303

PATIENT
  Age: 32 Year
  Sex: Male

DRUGS (1)
  1. AVONEX [Suspect]
     Indication: MULTIPLE SCLEROSIS
     Route: 030
     Dates: start: 20110314

REACTIONS (7)
  - SEMEN DISCOLOURATION [None]
  - ABASIA [None]
  - MUSCULAR WEAKNESS [None]
  - GENITAL HYPOAESTHESIA [None]
  - DIPLEGIA [None]
  - INFLUENZA LIKE ILLNESS [None]
  - ERECTILE DYSFUNCTION [None]
